FAERS Safety Report 15768236 (Version 2)
Quarter: 2019Q1

REPORT INFORMATION
  Report Type: Not Available
  Country: US (occurrence: US)
  Receive Date: 20181227
  Receipt Date: 20190110
  Transmission Date: 20190417
  Serious: Yes (Death)
  Sender: FDA-Public Use
  Company Number: US-NEUROCRINE BIOSCIENCES INC.-2018NBI03641

PATIENT
  Age: 56 Year
  Sex: Male

DRUGS (14)
  1. INGREZZA [Suspect]
     Active Substance: VALBENAZINE
     Indication: TARDIVE DYSKINESIA
     Route: 048
     Dates: start: 20171108, end: 20171109
  2. PROZAC [Concomitant]
     Active Substance: FLUOXETINE HYDROCHLORIDE
  3. NORVASC [Concomitant]
     Active Substance: AMLODIPINE BESYLATE
     Indication: HYPERTENSION
  4. GLIPIZIDE ER [Concomitant]
     Active Substance: GLIPIZIDE
     Dosage: EVERY MORNING
  5. BASAGLAR [Concomitant]
     Active Substance: INSULIN GLARGINE
     Dosage: EVERY EVENING
  6. METFORMIN ER [Concomitant]
     Active Substance: METFORMIN HYDROCHLORIDE
     Dosage: EVERY MORNING
  7. GABAPENTIN. [Concomitant]
     Active Substance: GABAPENTIN
  8. PRILOSEC [Concomitant]
     Active Substance: OMEPRAZOLE MAGNESIUM
     Indication: DYSPEPSIA
  9. MIRTAZAPINE. [Concomitant]
     Active Substance: MIRTAZAPINE
     Dosage: AT BEDTIME
  10. LOSARTAN. [Concomitant]
     Active Substance: LOSARTAN
  11. ZYRTEC [Concomitant]
     Active Substance: CETIRIZINE HYDROCHLORIDE
     Dosage: AT BEDTIME
  12. CENTURY SENIOR MULTIVITAMIN [Concomitant]
  13. INGREZZA [Suspect]
     Active Substance: VALBENAZINE
     Route: 048
     Dates: start: 20171110
  14. PROLIXIN DECANOATE [Concomitant]
     Active Substance: FLUPHENAZINE DECANOATE

REACTIONS (1)
  - Overdose [Fatal]

NARRATIVE: CASE EVENT DATE: 20181210
